FAERS Safety Report 17170208 (Version 1)
Quarter: 2019Q4

REPORT INFORMATION
  Report Type: Report from Study
  Country: IT (occurrence: IT)
  Receive Date: 20191218
  Receipt Date: 20191218
  Transmission Date: 20200122
  Serious: Yes (Other)
  Sender: FDA-Public Use
  Company Number: IT-PFIZER INC-2019542616

PATIENT
  Age: 32 Year
  Sex: Male

DRUGS (1)
  1. GABAPENTIN. [Suspect]
     Active Substance: GABAPENTIN
     Indication: MENTAL DISORDER
     Dosage: 600 MG, 1X/DAY
     Route: 048

REACTIONS (3)
  - Feeling jittery [Unknown]
  - Psychomotor hyperactivity [Unknown]
  - Intentional product misuse [Unknown]

NARRATIVE: CASE EVENT DATE: 20191104
